FAERS Safety Report 4301648-5 (Version None)
Quarter: 2004Q1

REPORT INFORMATION
  Report Type: 
  Country: None (occurrence: None)
  Receive Date: 20040219
  Receipt Date: 20031021
  Transmission Date: 20041129
  Serious: Yes (Death)
  Sender: FDA-Public Use
  Company Number: 805#1#2003-00040

PATIENT
  Age: 79 Year
  Sex: Female

DRUGS (10)
  1. ALPROSTADIL [Suspect]
     Indication: ATHEROSCLEROSIS OBLITERANS
     Dosage: 60 MCG (60 MCG 1 IN 1 DAY(S))
     Route: 041
     Dates: start: 20031002, end: 20031002
  2. ALPROSTADIL [Suspect]
     Indication: ATHEROSCLEROSIS OBLITERANS
     Dosage: 60 MCG (60 MCG 1 IN 1 DAY(S))
     Route: 041
     Dates: start: 20031003, end: 20031009
  3. MEYLON (SODIUM BICARBONATE) [Suspect]
     Dosage: 20 ML (20 ML 1 IN 1 DAY(S))
     Route: 041
     Dates: start: 20031002, end: 20031002
  4. MEYLON (SODIUM BICARBONATE) [Suspect]
     Dosage: 20 ML (20 ML 1 IN 1 DAY(S))
     Route: 041
     Dates: start: 20031003, end: 20031008
  5. TRANSFUSION-SOLUTION () [Suspect]
     Dosage: 500 ML (500ML 1 IN 1 DAY(S))
     Route: 041
     Dates: start: 20031002, end: 20031002
  6. TRANSFUSION-SOLUTION () [Suspect]
     Dosage: 500 ML (500ML 1 IN 1 DAY(S))
     Route: 041
     Dates: start: 20031003, end: 20031008
  7. CEFOPERAZONE-SODIUM/SULBACTAM-SODIUM (CEFOPERAZONE SODIUM, SULBACTAM S [Concomitant]
  8. RANITIDINE HYDROCHLORIDE [Concomitant]
  9. FUROSEMIDE [Concomitant]
  10. GABEXATE-MESILATE (GABEXATE MESILATE) [Concomitant]

REACTIONS (15)
  - ALANINE AMINOTRANSFERASE INCREASED [None]
  - ASPARTATE AMINOTRANSFERASE INCREASED [None]
  - BLOOD ALKALINE PHOSPHATASE INCREASED [None]
  - BLOOD LACTATE DEHYDROGENASE INCREASED [None]
  - BLOOD PH INCREASED [None]
  - BLOOD PRESSURE DECREASED [None]
  - DISSEMINATED INTRAVASCULAR COAGULATION [None]
  - LUNG DISORDER [None]
  - MITRAL VALVE INCOMPETENCE [None]
  - MULTI-ORGAN FAILURE [None]
  - MYOCARDIAL INFARCTION [None]
  - PLATELET COUNT DECREASED [None]
  - PULMONARY INFARCTION [None]
  - RESPIRATORY DISTRESS [None]
  - TRICUSPID VALVE INCOMPETENCE [None]
